FAERS Safety Report 9647010 (Version 2)
Quarter: 2013Q4

REPORT INFORMATION
  Report Type: Spontaneous
  Country: US (occurrence: US)
  Receive Date: 20131027
  Receipt Date: 20131027
  Transmission Date: 20140711
  Serious: Yes (Other)
  Sender: FDA-Public Use
  Company Number: US-NAPPMUNDI-USA-2013-0102221

PATIENT
  Age: 58 Year
  Sex: Male
  Weight: 133.79 kg

DRUGS (2)
  1. OXYCONTIN (NDA 22-272) [Suspect]
     Indication: BONE PAIN
     Dosage: 80 MG, BID
     Route: 048
     Dates: start: 2009, end: 2011
  2. OXYCONTIN (NDA 22-272) [Suspect]
     Dosage: 20 MG, BID
     Route: 048

REACTIONS (21)
  - Drug dependence [Unknown]
  - Drug withdrawal syndrome [Recovered/Resolved]
  - Neuropathy peripheral [Unknown]
  - Gout [Unknown]
  - Tooth loss [Unknown]
  - Tooth disorder [Unknown]
  - Feeling guilty [Unknown]
  - Skin lesion [Unknown]
  - Panic attack [Unknown]
  - Activities of daily living impaired [Unknown]
  - Gait disturbance [Unknown]
  - Dyspnoea [Recovered/Resolved]
  - Amnesia [Not Recovered/Not Resolved]
  - Feeling hot [Recovered/Resolved]
  - Disturbance in attention [Unknown]
  - Depressed mood [Unknown]
  - Aggression [Unknown]
  - Memory impairment [Unknown]
  - Paraesthesia [Unknown]
  - Insomnia [Recovered/Resolved]
  - Speech disorder [Not Recovered/Not Resolved]
